FAERS Safety Report 6004371-4 (Version None)
Quarter: 2008Q4

REPORT INFORMATION
  Report Type: 
  Country: None (occurrence: None)
  Receive Date: 20081216
  Receipt Date: 20081208
  Transmission Date: 20090506
  Serious: Yes (Hospitalization)
  Sender: FDA-Public Use
  Company Number: FR-ELI_LILLY_AND_COMPANY-FR200812001870

PATIENT
  Sex: Male
  Weight: 92 kg

DRUGS (9)
  1. ALIMTA [Suspect]
     Indication: LUNG ADENOCARCINOMA
     Dosage: 1000 MG, ON DAY1 EVERY 21 DAYS
     Route: 042
     Dates: start: 20080516, end: 20080715
  2. COAPROVEL [Concomitant]
     Dosage: 150 MG, DAILY (1/D)
     Route: 065
  3. LERCAN [Concomitant]
     Dosage: 10 MG, DAILY (1/D)
     Route: 065
  4. NEXIUM [Concomitant]
     Dosage: UNK, DAILY (1/D)
     Route: 065
  5. KARDEGIC [Concomitant]
     Dosage: 160 MG, UNKNOWN
     Route: 065
  6. DOLIPRANE [Concomitant]
     Dosage: 1 G, 3/D
     Route: 065
  7. FOLIC ACID [Concomitant]
     Dosage: 0.4 G, DAILY (1/D)
     Route: 065
     Dates: start: 20080506
  8. PRIMPERAN /00041901/ [Concomitant]
     Dosage: 10 MG, 3/D, THE DAY BEFORE. THE SAME DAY AND THE DAY AFTER THE ADMINISTRATION OF CHEMOTHERAPY
     Route: 065
     Dates: start: 20080516
  9. SOLUPRED [Concomitant]
     Dosage: 30 MG, 2/D, THE DAY BEFORE. THE SAME DAY AND THE DAY AFTER THE ADMINISTRATION OF CHEMOTHERAPY
     Route: 065
     Dates: start: 20080516

REACTIONS (6)
  - COUGH [None]
  - DIARRHOEA [None]
  - FEBRILE BONE MARROW APLASIA [None]
  - NEUTROPENIA [None]
  - PRURITUS [None]
  - RASH [None]
